FAERS Safety Report 15370306 (Version 2)
Quarter: 2018Q3

REPORT INFORMATION
  Report Type: Report from Study
  Country: DE (occurrence: DE)
  Receive Date: 20180911
  Receipt Date: 20180913
  Transmission Date: 20181010
  Serious: Yes (Hospitalization)
  Sender: FDA-Public Use
  Company Number: DE-PFIZER INC-2018136851

PATIENT
  Age: 72 Year
  Sex: Female
  Weight: 88 kg

DRUGS (13)
  1. AVASTIN [Suspect]
     Active Substance: BEVACIZUMAB
     Dosage: 1325 MG, FIRST CYCLE
     Route: 042
     Dates: start: 20101109, end: 20101109
  2. AVASTIN [Suspect]
     Active Substance: BEVACIZUMAB
     Dosage: 1325 MG, FIRST CYCLE
     Route: 042
     Dates: start: 20101202, end: 20101202
  3. DOCETAXEL. [Suspect]
     Active Substance: DOCETAXEL
     Dosage: 60 MG/M2, UNK
     Route: 042
     Dates: start: 20101202
  4. CIPROFLOXACIN. [Concomitant]
     Active Substance: CIPROFLOXACIN
     Indication: URINE ANALYSIS ABNORMAL
     Dosage: 1 DF, 1X/DAY
     Route: 065
     Dates: start: 20110630, end: 20110704
  5. DOCETAXEL. [Suspect]
     Active Substance: DOCETAXEL
     Dosage: 60 MG/M2, UNK
     Route: 042
     Dates: start: 20110203
  6. DOCETAXEL. [Suspect]
     Active Substance: DOCETAXEL
     Dosage: 60 MG/M2, UNK
     Route: 042
     Dates: start: 20110224
  7. DOCETAXEL. [Suspect]
     Active Substance: DOCETAXEL
     Dosage: 60 MG/M2, UNK
     Route: 042
     Dates: start: 20110113
  8. DOCETAXEL. [Suspect]
     Active Substance: DOCETAXEL
     Dosage: 60 MG/M2, UNK
     Route: 042
     Dates: start: 20101223
  9. ATENOLOL. [Concomitant]
     Active Substance: ATENOLOL
     Indication: HYPERTENSION
     Dosage: 50 MG, 1X/DAY
     Route: 048
     Dates: start: 2010
  10. AVASTIN [Suspect]
     Active Substance: BEVACIZUMAB
     Indication: BREAST CANCER METASTATIC
     Dosage: 1325 MG, FIRST CYCLE
     Route: 042
     Dates: start: 20101109, end: 20101109
  11. DOCETAXEL. [Suspect]
     Active Substance: DOCETAXEL
     Indication: BREAST CANCER METASTATIC
     Dosage: 75 MG/M2, UNK
     Route: 042
     Dates: start: 20101109
  12. AVASTIN [Suspect]
     Active Substance: BEVACIZUMAB
     Dosage: 1325 MG, FIRST CYCLE
     Route: 042
     Dates: start: 20101223, end: 20101223
  13. MONO?EMBOLEX [Concomitant]
     Active Substance: CERTOPARIN SODIUM
     Indication: ATRIAL FIBRILLATION
     Dosage: 3000 MG, UNK
     Route: 058
     Dates: start: 20101101

REACTIONS (4)
  - Fatigue [Recovered/Resolved]
  - Dysphonia [Not Recovered/Not Resolved]
  - Ageusia [Recovered/Resolved]
  - Febrile neutropenia [Recovered/Resolved]

NARRATIVE: CASE EVENT DATE: 20101115
